FAERS Safety Report 7732112-9 (Version None)
Quarter: 2011Q3

REPORT INFORMATION
  Report Type: 
  Country: None (occurrence: None)
  Receive Date: 20110906
  Receipt Date: 20110808
  Transmission Date: 20111222
  Serious: No
  Sender: FDA-Public Use
  Company Number: US-AMGEN-USASP2011040134

PATIENT

DRUGS (9)
  1. TYLENOL (CAPLET) [Concomitant]
  2. POTASSIUM [Concomitant]
  3. LIPITOR [Concomitant]
  4. AGGRENOX [Concomitant]
  5. VITAMINS                           /90003601/ [Concomitant]
  6. HYDROCHLOROTHIAZIDE [Concomitant]
  7. VITAMIN D [Concomitant]
  8. PROLIA [Suspect]
     Indication: OSTEOPOROSIS POSTMENOPAUSAL
     Dates: start: 20110301
  9. FLEXERIL [Concomitant]

REACTIONS (1)
  - BACK PAIN [None]
